FAERS Safety Report 19576588 (Version 1)
Quarter: 2021Q3

REPORT INFORMATION
  Report Type: Spontaneous
  Country: US (occurrence: US)
  Receive Date: 20210719
  Receipt Date: 20210719
  Transmission Date: 20211014
  Serious: No
  Sender: FDA-Public Use
  Company Number: None

PATIENT
  Age: 74 Year
  Sex: Male

DRUGS (1)
  1. IOHEXOL (IOHEXOL 320MG/ML) [Suspect]
     Active Substance: IOHEXOL
     Indication: VASCULAR OPERATION
     Dosage: ?          OTHER ROUTE:IV?
     Route: 042
     Dates: start: 20210630, end: 20210630

REACTIONS (1)
  - Anaphylactic reaction [None]

NARRATIVE: CASE EVENT DATE: 20210630
